FAERS Safety Report 8540740-6 (Version None)
Quarter: 2012Q3

REPORT INFORMATION
  Report Type: 
  Country: None (occurrence: None)
  Receive Date: 20120726
  Receipt Date: 20120510
  Transmission Date: 20120928
  Serious: Yes (Hospitalization)
  Sender: FDA-Public Use
  Company Number: JP-SP-2010-07127

PATIENT
  Sex: Male

DRUGS (4)
  1. METFORMIN HYDROCHLORIDE [Concomitant]
  2. ROSUVASTATIN [Concomitant]
  3. IMMUCYST [Suspect]
     Indication: BLADDER CANCER
     Route: 043
     Dates: start: 20101001, end: 20101201
  4. GLIMEPIRIDE [Concomitant]

REACTIONS (7)
  - TUBERCULOSIS [None]
  - DYSURIA [None]
  - HAEMATURIA [None]
  - INFLAMMATION [None]
  - PYREXIA [None]
  - POLLAKIURIA [None]
  - BOVINE TUBERCULOSIS [None]
